FAERS Safety Report 21250494 (Version 2)
Quarter: 2022Q3

REPORT INFORMATION
  Report Type: Report from Study
  Country: US (occurrence: US)
  Receive Date: 20220824
  Receipt Date: 20220928
  Transmission Date: 20221026
  Serious: No
  Sender: FDA-Public Use
  Company Number: US-BoehringerIngelheim-2022-BI-188705

PATIENT
  Age: 74 Year
  Sex: Female

DRUGS (2)
  1. OFEV [Suspect]
     Active Substance: NINTEDANIB
     Indication: Idiopathic pulmonary fibrosis
     Route: 048
     Dates: start: 20220701
  2. OFEV [Suspect]
     Active Substance: NINTEDANIB
     Indication: Interstitial lung disease

REACTIONS (4)
  - Nausea [Recovering/Resolving]
  - Skin exfoliation [Recovered/Resolved]
  - Skin disorder [Not Recovered/Not Resolved]
  - Skin texture abnormal [Unknown]

NARRATIVE: CASE EVENT DATE: 20220701
